FAERS Safety Report 8384214-4 (Version None)
Quarter: 2012Q2

REPORT INFORMATION
  Report Type: 
  Country: None (occurrence: None)
  Receive Date: 20120524
  Receipt Date: 20120514
  Transmission Date: 20120825
  Serious: Yes (Congenital Anomaly)
  Sender: FDA-Public Use
  Company Number: DE-TEVA-338765GER

PATIENT
  Sex: Female

DRUGS (4)
  1. LORAZEPAM [Concomitant]
     Route: 064
  2. ZOLPIDEM [Concomitant]
     Route: 064
  3. MYCOPHENOLATE MOFETIL [Suspect]
     Route: 064
  4. ESCITALOPRAM [Concomitant]
     Route: 064

REACTIONS (1)
  - TRACHEAL ATRESIA [None]
